FAERS Safety Report 7817428 (Version 4)
Quarter: 2013Q2

REPORT INFORMATION
  Report Type: Report from Study
  Country: BR (occurrence: BR)
  Receive Date: 20110217
  Receipt Date: 20130424
  Transmission Date: 20140414
  Serious: Yes (Hospitalization, Other)
  Sender: FDA-Public Use
  Company Number: BR-ABBOTT-10P-020-0673120-00

PATIENT
  Sex: Female
  Weight: 77 kg

DRUGS (13)
  1. HUMIRA 40 MG/ 0.8 ML PRE-FILLED SYRINGE [Suspect]
     Indication: RHEUMATOID ARTHRITIS
     Route: 058
     Dates: start: 2008
  2. METHOTREXATE [Concomitant]
     Indication: RHEUMATOID ARTHRITIS
     Route: 048
     Dates: start: 2008
  3. PREDNISONE [Concomitant]
     Indication: STEROID THERAPY
     Route: 048
     Dates: start: 2008
  4. DICLOFENAC SODIUM [Concomitant]
     Indication: PAIN
     Dosage: 3 EVERY 24 HOURS AS NECESSARY
     Route: 048
     Dates: start: 2009
  5. CALCIUM BICARBONATE [Concomitant]
     Indication: BONE DISORDER
     Route: 048
  6. FOLIC ACID [Concomitant]
     Indication: VITAMIN SUPPLEMENTATION
     Route: 048
  7. SIMVASTATIN [Concomitant]
     Indication: BLOOD CHOLESTEROL INCREASED
     Route: 048
  8. LOSARTAN [Concomitant]
     Indication: BLOOD PRESSURE ABNORMAL
     Route: 048
     Dates: start: 2010
  9. VENLAFAXINE [Concomitant]
     Indication: DEPRESSION
     Route: 048
     Dates: start: 2012
  10. OMEPRAZOLE [Concomitant]
     Indication: GASTRIC DISORDER
     Route: 048
     Dates: start: 2009
  11. ZOLPIDEM HEMITARTRATE [Concomitant]
     Indication: INSOMNIA
     Route: 048
     Dates: start: 201303
  12. DEPURA [Concomitant]
     Indication: PRODUCT USED FOR UNKNOWN INDICATION
     Route: 048
  13. BUPROPION [Concomitant]
     Indication: DEPRESSION
     Route: 048
     Dates: start: 2012

REACTIONS (15)
  - Depression [Not Recovered/Not Resolved]
  - Syncope [Unknown]
  - Hypertension [Not Recovered/Not Resolved]
  - Decreased appetite [Not Recovered/Not Resolved]
  - Eating disorder [Not Recovered/Not Resolved]
  - Weight decreased [Not Recovered/Not Resolved]
  - Headache [Unknown]
  - Tooth fracture [Unknown]
  - Wound [Unknown]
  - Vomiting [Unknown]
  - Gastric disorder [Unknown]
  - Pain in extremity [Unknown]
  - Pain in extremity [Unknown]
  - Local swelling [Unknown]
  - Local swelling [Unknown]
